FAERS Safety Report 24036807 (Version 1)
Quarter: 2024Q3

REPORT INFORMATION
  Report Type: Spontaneous
  Country: US (occurrence: None)
  Receive Date: 20240701
  Receipt Date: 20240701
  Transmission Date: 20241017
  Serious: No
  Sender: Public
  Company Number: None

PATIENT
  Age: 54 Year
  Sex: Female

DRUGS (1)
  1. NUCALA [Suspect]
     Active Substance: MEPOLIZUMAB
     Indication: Asthma
     Dosage: FREQUENCY : MONTHLY;?
     Route: 058
     Dates: start: 20240605, end: 20240701

REACTIONS (5)
  - Back pain [None]
  - Peripheral swelling [None]
  - Peripheral swelling [None]
  - Herpes virus infection [None]
  - Migraine [None]

NARRATIVE: CASE EVENT DATE: 20240615
